FAERS Safety Report 6983397-8 (Version None)
Quarter: 2010Q3

REPORT INFORMATION
  Report Type: 
  Country: None (occurrence: None)
  Receive Date: 20100914
  Receipt Date: 20100914
  Transmission Date: 20110219
  Serious: No
  Sender: FDA-Public Use
  Company Number: None

PATIENT
  Age: 53 Year
  Sex: Female
  Weight: 90.2658 kg

DRUGS (1)
  1. METRONIDAZOLE [Suspect]
     Indication: INFECTION
     Dosage: 1 PILL 2X PO
     Route: 048
     Dates: start: 20100902, end: 20100906

REACTIONS (2)
  - OEDEMA PERIPHERAL [None]
  - PRURITUS [None]
